FAERS Safety Report 15164658 (Version 1)
Quarter: 2018Q3

REPORT INFORMATION
  Report Type: Spontaneous
  Country: JP (occurrence: JP)
  Receive Date: 20180719
  Receipt Date: 20180719
  Transmission Date: 20181010
  Serious: Yes (Hospitalization, Disabling, Other)
  Sender: FDA-Public Use
  Company Number: JP-ROCHE-2040218

PATIENT
  Age: 47 Year
  Sex: Female
  Weight: 44 kg

DRUGS (6)
  1. AVASTIN [Suspect]
     Active Substance: BEVACIZUMAB
     Indication: GLIOBLASTOMA
     Dosage: TREATMENT LINE: 1ST LINE?TREATMENT CYCLE OF THIS MEDICINE NUMBER: 3 OR MORE
     Route: 041
     Dates: start: 20161115, end: 20171024
  2. TEMODAL [Concomitant]
     Active Substance: TEMOZOLOMIDE
     Route: 048
     Dates: start: 20170110, end: 20170114
  3. LIXIANA [Suspect]
     Active Substance: EDOXABAN TOSYLATE
     Indication: CEREBRAL INFARCTION
     Dosage: DOSAGE IS UNCERTAIN.
     Route: 065
     Dates: start: 20171031, end: 20171107
  4. E KEPPRA [Concomitant]
     Active Substance: LEVETIRACETAM
     Dosage: DOSE INTERVAL UNCERTAINTY
     Route: 048
     Dates: start: 20160914, end: 20171228
  5. TEMODAL [Concomitant]
     Active Substance: TEMOZOLOMIDE
     Indication: GLIOBLASTOMA
     Route: 048
     Dates: start: 20161026, end: 20161211
  6. TEMODAL [Concomitant]
     Active Substance: TEMOZOLOMIDE
     Route: 048
     Dates: start: 20170307, end: 20171003

REACTIONS (5)
  - Cerebral infarction [Not Recovered/Not Resolved]
  - Confusional state [Unknown]
  - Cerebral haemorrhage [Not Recovered/Not Resolved]
  - Restlessness [Unknown]
  - Hypertension [Not Recovered/Not Resolved]

NARRATIVE: CASE EVENT DATE: 20170226
